FAERS Safety Report 10168062 (Version 2)
Quarter: 2014Q2

REPORT INFORMATION
  Report Type: Report from Study
  Country: US (occurrence: US)
  Receive Date: 20140512
  Receipt Date: 20140512
  Transmission Date: 20141212
  Serious: Yes (Other)
  Sender: FDA-Public Use
  Company Number: PHEH2013US017297

PATIENT
  Sex: Female
  Weight: 64.4 kg

DRUGS (2)
  1. GILENYA [Suspect]
     Indication: MULTIPLE SCLEROSIS
     Dosage: 0.5 MG, QD
     Route: 048
     Dates: start: 20101206
  2. KEPPRA [Suspect]

REACTIONS (25)
  - Hemiparesis [Unknown]
  - Blindness [Unknown]
  - Nuclear magnetic resonance imaging abnormal [Unknown]
  - Irritable bowel syndrome [Unknown]
  - Restless legs syndrome [Unknown]
  - Nystagmus [Unknown]
  - Memory impairment [Unknown]
  - Cognitive disorder [Unknown]
  - Affect lability [Unknown]
  - Disturbance in attention [Unknown]
  - Coordination abnormal [Unknown]
  - Balance disorder [Unknown]
  - Myalgia [Unknown]
  - Muscle spasms [Unknown]
  - Muscle twitching [Unknown]
  - Fatigue [Unknown]
  - Muscular weakness [Unknown]
  - Muscle spasticity [Unknown]
  - Hypoaesthesia [Unknown]
  - Weight decreased [Unknown]
  - Depression [Unknown]
  - Paraesthesia [Unknown]
  - Diarrhoea [Unknown]
  - Dizziness [Unknown]
  - Drug withdrawal syndrome [Unknown]
